FAERS Safety Report 16951003 (Version 1)
Quarter: 2019Q4

REPORT INFORMATION
  Report Type: Spontaneous
  Country: US (occurrence: US)
  Receive Date: 20191023
  Receipt Date: 20191023
  Transmission Date: 20200122
  Serious: No
  Sender: FDA-Public Use
  Company Number: NVSC2019US012223

PATIENT
  Age: 26 Year
  Sex: Female

DRUGS (1)
  1. LABETALOL [Suspect]
     Active Substance: LABETALOL\LABETALOL HYDROCHLORIDE
     Indication: ANGINA PECTORIS
     Dosage: 100 MG, TID
     Route: 048

REACTIONS (1)
  - Maternal exposure during pregnancy [Unknown]
